FAERS Safety Report 8005048-6 (Version None)
Quarter: 2011Q4

REPORT INFORMATION
  Report Type: 
  Country: None (occurrence: None)
  Receive Date: 20111220
  Receipt Date: 20111208
  Transmission Date: 20120403
  Serious: Yes (Hospitalization)
  Sender: FDA-Public Use
  Company Number: DSA_48395_2011

PATIENT
  Age: 73 Year
  Sex: Male

DRUGS (11)
  1. ATARAX [Concomitant]
  2. LEVOTHYROXINE SODIUM [Concomitant]
  3. DILTIAZEM [Suspect]
     Indication: PRODUCT USED FOR UNKNOWN INDICATION
     Dosage: 200 MG QD ORAL
     Route: 048
  4. ACETAMINOPHEN [Concomitant]
  5. ALLOPURINOL [Concomitant]
  6. NICOBION [Concomitant]
  7. DIGOXIN [Suspect]
     Indication: PRODUCT USED FOR UNKNOWN INDICATION
     Dosage: 0.5 MG QD ORAL
     Route: 048
  8. INNOHEP [Concomitant]
  9. NORFLOXACIN [Concomitant]
  10. FUROSEMIDE [Concomitant]
  11. DUPHALAC [Concomitant]

REACTIONS (9)
  - DECREASED APPETITE [None]
  - BRADYCARDIA [None]
  - ASTHENIA [None]
  - OVERDOSE [None]
  - VOMITING [None]
  - NODAL RHYTHM [None]
  - GENERAL PHYSICAL HEALTH DETERIORATION [None]
  - ATRIOVENTRICULAR BLOCK COMPLETE [None]
  - MITRAL VALVE INCOMPETENCE [None]
